FAERS Safety Report 8901263 (Version 1)
Quarter: 2012Q4

REPORT INFORMATION
  Report Type: 
  Country: US (occurrence: US)
  Receive Date: 20121108
  Receipt Date: 20121108
  Transmission Date: 20130627
  Serious: No
  Sender: FDA-Public Use
  Company Number: US-ASTRAZENECA-2012SE82439

PATIENT
  Age: 68 Year
  Sex: Male

DRUGS (1)
  1. BRILINTA [Suspect]
     Route: 048
     Dates: end: 2012

REACTIONS (1)
  - Rash pruritic [Unknown]
